FAERS Safety Report 10445595 (Version 2)
Quarter: 2014Q3

REPORT INFORMATION
  Report Type: Spontaneous
  Country: US (occurrence: US)
  Receive Date: 20140908
  Receipt Date: 20140908
  Transmission Date: 20150326
  Serious: No
  Sender: FDA-Public Use
  Company Number: US-BRISTOL-MYERS SQUIBB COMPANY-20734711

PATIENT
  Age: 54 Year
  Sex: Male

DRUGS (2)
  1. CYMBALTA [Concomitant]
     Active Substance: DULOXETINE HYDROCHLORIDE
  2. ABILIFY [Suspect]
     Active Substance: ARIPIPRAZOLE
     Indication: MAJOR DEPRESSION
     Route: 048
     Dates: start: 20130405

REACTIONS (3)
  - Feeling jittery [Recovered/Resolved]
  - Decreased activity [Recovered/Resolved]
  - Somnolence [Recovered/Resolved]
